FAERS Safety Report 8297643-4 (Version None)
Quarter: 2012Q2

REPORT INFORMATION
  Report Type: 
  Country: None (occurrence: None)
  Receive Date: 20120419
  Receipt Date: 20120412
  Transmission Date: 20120825
  Serious: Yes (Other)
  Sender: FDA-Public Use
  Company Number: BR-PFIZER INC-2012092564

PATIENT
  Age: 33 Year
  Sex: Female
  Weight: 77 kg

DRUGS (3)
  1. PANTOPRAZOLE [Concomitant]
     Indication: GASTRIC DISORDER
     Dosage: 40 MG, 1X/DAY
  2. ZOLOFT [Suspect]
     Indication: OBSESSIVE-COMPULSIVE DISORDER
     Dosage: 25 MG (HALF 50MG TABLET), 1X/DAY
     Route: 048
     Dates: start: 20120411
  3. FLUOXETINE HYDROCHLORIDE [Suspect]
     Dosage: UNK

REACTIONS (8)
  - DIZZINESS [None]
  - DYSPEPSIA [None]
  - TREMOR [None]
  - NAUSEA [None]
  - DYSPHAGIA [None]
  - THROAT TIGHTNESS [None]
  - NERVOUSNESS [None]
  - INSOMNIA [None]
